FAERS Safety Report 6336173-3 (Version None)
Quarter: 2009Q3

REPORT INFORMATION
  Report Type: 
  Country: None (occurrence: None)
  Receive Date: 20090901
  Receipt Date: 20090820
  Transmission Date: 20100115
  Serious: Yes (Hospitalization, Other)
  Sender: FDA-Public Use
  Company Number: US-ALEXION-A200900658

PATIENT
  Sex: Female

DRUGS (24)
  1. SOLIRIS [Suspect]
     Indication: PAROXYSMAL NOCTURNAL HAEMOGLOBINURIA
     Dosage: 600 MG, QW X4
     Route: 042
     Dates: start: 20081217
  2. SOLIRIS [Suspect]
     Dosage: 900 MG, Q2W
     Route: 042
     Dates: start: 20090116
  3. LEVOXYL [Concomitant]
     Dosage: 150 UG, QD
  4. IMDUR [Concomitant]
     Dosage: 30 MG, BID
  5. FLOVENT [Concomitant]
     Dosage: 220 UG, 2 PUFFS BID
  6. PROTONIX                           /01263201/ [Concomitant]
     Dosage: 40 MG, QD
  7. K-DUR [Concomitant]
     Dosage: 10 MEQ, QD
  8. IRON SULFATETHIAMIN COMPOUND TAB [Concomitant]
     Dosage: 325 MG, BID
  9. LANOXIN [Concomitant]
     Dosage: 0.125 UG, QD
  10. DILTIAZEM [Concomitant]
     Dosage: 240 MG, QD
  11. ALDACTONE [Concomitant]
     Dosage: 50 MG, QD
  12. ACYCLOVIR [Concomitant]
     Dosage: 800 MG, QID
  13. LASIX [Concomitant]
     Dosage: 40 MG, BID
  14. ASPIRIN [Concomitant]
     Dosage: 81 MG, QD
  15. LIPITOR [Concomitant]
     Dosage: 80 MG, QD
  16. ALBUTEROL [Concomitant]
     Dosage: 2 PUFFS, Q6H
  17. SINGULAIR [Concomitant]
     Dosage: 10 MG, QD
  18. ATIVAN [Concomitant]
     Dosage: 0.5 MG, TID, PRN
  19. DUONEB [Concomitant]
     Dosage: UNK, QID, PRN
  20. AMBIEN [Concomitant]
     Dosage: 10 MG, QD, HS
  21. DARVOCET-N 100 [Concomitant]
     Dosage: 100 Q6H, PRN
  22. FOSAMAX [Concomitant]
     Dosage: 70 MG, QW
  23. ARIMIDEX [Concomitant]
     Dosage: 1 MG, QD
  24. SPIRIVA [Concomitant]
     Dosage: UNK

REACTIONS (9)
  - ADVERSE REACTION [None]
  - ANAEMIA [None]
  - BALANCE DISORDER [None]
  - CARDIAC FAILURE CONGESTIVE [None]
  - DEHYDRATION [None]
  - FALL [None]
  - MENTAL STATUS CHANGES [None]
  - TREMOR [None]
  - WHEEZING [None]
